FAERS Safety Report 11866861 (Version 1)
Quarter: 2015Q4

REPORT INFORMATION
  Report Type: Report from Study
  Country: PL (occurrence: PL)
  Receive Date: 20151224
  Receipt Date: 20151224
  Transmission Date: 20160305
  Serious: Yes (Other)
  Sender: FDA-Public Use
  Company Number: PHHY2015PL167191

PATIENT
  Age: 64 Year
  Sex: Male

DRUGS (4)
  1. TASIGNA [Suspect]
     Active Substance: NILOTINIB
     Dosage: 200 MG TO 400 MG
     Route: 065
  2. TASIGNA [Suspect]
     Active Substance: NILOTINIB
     Dosage: 400 MG, (2 X 200 MG)
     Route: 065
  3. TASIGNA [Suspect]
     Active Substance: NILOTINIB
     Indication: CHRONIC MYELOID LEUKAEMIA
     Dosage: 800 MG, (2 X 200 MG)
     Route: 065
     Dates: start: 201402
  4. TASIGNA [Suspect]
     Active Substance: NILOTINIB
     Dosage: 200 MG, BID
     Route: 065

REACTIONS (4)
  - Hyperglycaemia [Unknown]
  - Dry mouth [Recovering/Resolving]
  - Necrosis [Unknown]
  - Drug intolerance [Recovering/Resolving]

NARRATIVE: CASE EVENT DATE: 201510
